FAERS Safety Report 15120531 (Version 1)
Quarter: 2018Q3

REPORT INFORMATION
  Report Type: Spontaneous
  Country: FR (occurrence: FR)
  Receive Date: 20180709
  Receipt Date: 20180709
  Transmission Date: 20181010
  Serious: Yes (Life-Threatening, Other)
  Sender: FDA-Public Use
  Company Number: FR-ADIENNEP-2018AD000386

PATIENT
  Age: 21 Year
  Sex: Male

DRUGS (1)
  1. TEPADINA [Suspect]
     Active Substance: THIOTEPA
     Indication: PROPHYLAXIS AGAINST TRANSPLANT REJECTION
     Dosage: 2 DOSAGES 100 MG/KG DAILY
     Route: 042
     Dates: start: 20180520, end: 20180522

REACTIONS (2)
  - Hypoxia [Recovered/Resolved]
  - Respiratory distress [Recovered/Resolved]

NARRATIVE: CASE EVENT DATE: 20180603
